FAERS Safety Report 9379148 (Version 3)
Quarter: 2013Q3

REPORT INFORMATION
  Report Type: Spontaneous
  Country: US (occurrence: None)
  Receive Date: 20130626
  Receipt Date: 20130718
  Transmission Date: 20140515
  Serious: No
  Sender: FDA-Public Use
  Company Number: JPI-P-032948

PATIENT
  Age: 24 Year
  Sex: Male

DRUGS (1)
  1. XYREM(500 MILLIGRAM/MILLILITERS, SOLUTION)(SODIUM OXYBATE) [Suspect]
     Indication: NARCOLEPSY
     Dosage: 3 GM(1.5 GM, 2 IN 1 D), ORAL
     Route: 048
     Dates: start: 20080609

REACTIONS (2)
  - Tendon operation [None]
  - Tendon injury [None]
